FAERS Safety Report 7049332-1 (Version None)
Quarter: 2010Q4

REPORT INFORMATION
  Report Type: 
  Country: None (occurrence: None)
  Receive Date: 20101018
  Receipt Date: 20100709
  Transmission Date: 20110411
  Serious: No
  Sender: FDA-Public Use
  Company Number: A0869501A

PATIENT
  Age: 70 Year
  Sex: Female

DRUGS (2)
  1. CEFUROXIME AXETIL [Suspect]
     Indication: INFECTION
     Dosage: 250MG TWICE PER DAY
     Route: 048
     Dates: start: 20100611
  2. SYNTHROID [Concomitant]

REACTIONS (3)
  - DIVERTICULUM [None]
  - PAIN [None]
  - PYREXIA [None]
